FAERS Safety Report 11997144 (Version 2)
Quarter: 2016Q3

REPORT INFORMATION
  Report Type: Report from Study
  Country: US (occurrence: US)
  Receive Date: 20160203
  Receipt Date: 20160914
  Transmission Date: 20161109
  Serious: Yes (Hospitalization, Other)
  Sender: FDA-Public Use
  Company Number: US-AMGEN-USASP2016010061

PATIENT
  Age: 59 Year
  Sex: Male

DRUGS (1)
  1. ENBREL [Suspect]
     Active Substance: ETANERCEPT
     Indication: ANKYLOSING SPONDYLITIS
     Dosage: 50 MG, QWK
     Route: 065

REACTIONS (10)
  - Rib fracture [Unknown]
  - Pelvic fracture [Unknown]
  - Multiple injuries [Unknown]
  - Pneumonia [Unknown]
  - Furuncle [Recovering/Resolving]
  - Spinal fracture [Unknown]
  - Limb crushing injury [Unknown]
  - Road traffic accident [Unknown]
  - Lower limb fracture [Unknown]
  - Infection [Unknown]

NARRATIVE: CASE EVENT DATE: 201512
